FAERS Safety Report 8915033 (Version 2)
Quarter: 2013Q1

REPORT INFORMATION
  Report Type: Spontaneous
  Country: BR (occurrence: BR)
  Receive Date: 20121116
  Receipt Date: 20130301
  Transmission Date: 20140127
  Serious: Yes (Other)
  Sender: FDA-Public Use
  Company Number: BR-GLAXOSMITHKLINE-A1001218A

PATIENT
  Age: 32 Year
  Sex: Female
  Weight: 54 kg

DRUGS (8)
  1. NARAMIG [Suspect]
     Indication: MIGRAINE
     Dosage: 5MG PER DAY
     Route: 065
     Dates: start: 2002
  2. CHLORPROMAZINE HYDROCHLORIDE [Suspect]
     Indication: MIGRAINE
     Dosage: 20DROP PER DAY
     Route: 065
     Dates: start: 2002
  3. LAMICTAL [Suspect]
     Indication: BIPOLAR DISORDER
     Dosage: 50MG AT NIGHT
     Route: 065
     Dates: start: 2002
  4. TOPIRAMATE [Suspect]
     Indication: BIPOLAR DISORDER
     Dosage: 50MG PER DAY
     Route: 065
     Dates: start: 2000
  5. DIPYRONE [Suspect]
     Indication: MIGRAINE
     Dosage: 500MG FOUR TIMES PER DAY
     Dates: start: 2002
  6. MAXALT [Suspect]
     Indication: MIGRAINE
     Dosage: 1TAB MONTHLY
     Route: 065
     Dates: start: 2002
  7. RIVOTRIL [Suspect]
     Indication: PRODUCT USED FOR UNKNOWN INDICATION
     Dosage: 1TAB WEEKLY
     Route: 060
     Dates: start: 2000
  8. DIPYRONE [Suspect]
     Indication: MIGRAINE
     Route: 042

REACTIONS (3)
  - Abortion spontaneous [Unknown]
  - Drug ineffective [Unknown]
  - Exposure during pregnancy [Unknown]
